FAERS Safety Report 6569200-9 (Version None)
Quarter: 2010Q1

REPORT INFORMATION
  Report Type: 
  Country: None (occurrence: None)
  Receive Date: 20100203
  Receipt Date: 20100126
  Transmission Date: 20100710
  Serious: Yes (Other)
  Sender: FDA-Public Use
  Company Number: RU-MERCK-1001RUS00003

PATIENT
  Age: 54 Year
  Sex: Female

DRUGS (3)
  1. JANUVIA [Suspect]
     Indication: TYPE 2 DIABETES MELLITUS
     Route: 048
  2. SIOFOR [Concomitant]
     Indication: TYPE 2 DIABETES MELLITUS
     Route: 048
  3. DIABETON [Concomitant]
     Indication: TYPE 2 DIABETES MELLITUS
     Route: 048

REACTIONS (1)
  - IMPAIRED GASTRIC EMPTYING [None]
